FAERS Safety Report 17068356 (Version 2)
Quarter: 2019Q4

REPORT INFORMATION
  Report Type: Spontaneous
  Country: US (occurrence: US)
  Receive Date: 20191123
  Receipt Date: 20191128
  Transmission Date: 20200122
  Serious: No
  Sender: FDA-Public Use
  Company Number: US-TEVA-2019-US-1140373

PATIENT
  Sex: Female

DRUGS (1)
  1. CLONAZEPAM. [Suspect]
     Active Substance: CLONAZEPAM
     Indication: ANXIETY
     Dosage: 1 MILLIGRAM DAILY; TAKE ONE TABLET IN THE MORNING AND ONE IN THE EVENING
     Route: 065
     Dates: start: 20191114, end: 20191116

REACTIONS (10)
  - Fear [Unknown]
  - Dizziness [Unknown]
  - Abnormal behaviour [Unknown]
  - Feeling abnormal [Unknown]
  - Movement disorder [Unknown]
  - Product dose omission [Unknown]
  - Somnolence [Unknown]
  - Gait disturbance [Unknown]
  - Confusional state [Unknown]
  - Anxiety [Unknown]

NARRATIVE: CASE EVENT DATE: 20191114
